FAERS Safety Report 9094382 (Version 1)
Quarter: 2013Q1

REPORT INFORMATION
  Report Type: Spontaneous
  Country: US (occurrence: None)
  Receive Date: 20130215
  Receipt Date: 20130215
  Transmission Date: 20140127
  Serious: Yes (Hospitalization)
  Sender: FDA-Public Use
  Company Number: None

PATIENT
  Sex: Female
  Weight: 154 kg

DRUGS (1)
  1. RITUXAN [Suspect]
     Indication: LEUKAEMIA
     Dosage: FIRST DOSE

REACTIONS (2)
  - Chills [None]
  - Nausea [None]
